FAERS Safety Report 4747034-5 (Version None)
Quarter: 2005Q3

REPORT INFORMATION
  Report Type: 
  Country: None (occurrence: None)
  Receive Date: 20050815
  Receipt Date: 20050730
  Transmission Date: 20060218
  Serious: Yes (Other)
  Sender: FDA-Public Use
  Company Number: USA0508104201

PATIENT
  Age: 29 Year
  Sex: Male

DRUGS (3)
  1. XIGRIS [Suspect]
     Indication: SEPTIC SHOCK
     Dates: start: 20050728, end: 20050730
  2. DOBUTAMINE HCL [Concomitant]
  3. LEVOPHED [Concomitant]

REACTIONS (2)
  - HAEMORRHAGE [None]
  - THROMBOSIS [None]
